FAERS Safety Report 11402693 (Version 1)
Quarter: 2015Q3

REPORT INFORMATION
  Report Type: Spontaneous
  Country: US (occurrence: US)
  Receive Date: 20150821
  Receipt Date: 20150821
  Transmission Date: 20151125
  Serious: No
  Sender: FDA-Public Use
  Company Number: US-ROCHE-1369261

PATIENT
  Sex: Female

DRUGS (17)
  1. MELATONIN [Concomitant]
     Active Substance: MELATONIN
  2. GABAPENTIN. [Concomitant]
     Active Substance: GABAPENTIN
  3. XANAX [Concomitant]
     Active Substance: ALPRAZOLAM
  4. OMEPRAZOLE. [Concomitant]
     Active Substance: OMEPRAZOLE
  5. ULTRAM [Concomitant]
     Active Substance: TRAMADOL HYDROCHLORIDE
  6. AMBIEN [Concomitant]
     Active Substance: ZOLPIDEM TARTRATE
  7. VITAMIN B12 [Concomitant]
     Active Substance: CYANOCOBALAMIN
     Route: 065
  8. HYOSCYAMINE. [Concomitant]
     Active Substance: HYOSCYAMINE
  9. PEGASYS [Suspect]
     Active Substance: PEGINTERFERON ALFA-2A
     Indication: HEPATITIS C
     Route: 065
  10. RIBAVIRIN. [Concomitant]
     Active Substance: RIBAVIRIN
     Indication: HEPATITIS C
     Dosage: IN AM
     Route: 065
  11. DILTIAZEM [Concomitant]
     Active Substance: DILTIAZEM
  12. LINZESS [Concomitant]
     Active Substance: LINACLOTIDE
  13. ONDANSETRON [Concomitant]
     Active Substance: ONDANSETRON
  14. SOVALDI [Concomitant]
     Active Substance: SOFOSBUVIR
     Indication: HEPATITIS C
     Route: 065
  15. OXYCONTIN [Concomitant]
     Active Substance: OXYCODONE HYDROCHLORIDE
  16. VIVELLE-DOT [Concomitant]
     Active Substance: ESTRADIOL
  17. RIBAVIRIN. [Concomitant]
     Active Substance: RIBAVIRIN
     Dosage: IN PM
     Route: 065

REACTIONS (2)
  - Depression [Not Recovered/Not Resolved]
  - Injection site pain [Not Recovered/Not Resolved]
